FAERS Safety Report 7485918-8 (Version None)
Quarter: 2011Q2

REPORT INFORMATION
  Report Type: 
  Country: None (occurrence: None)
  Receive Date: 20110516
  Receipt Date: 20110516
  Transmission Date: 20111010
  Serious: Yes (Hospitalization)
  Sender: FDA-Public Use
  Company Number: None

PATIENT
  Age: 79 Year
  Sex: Male
  Weight: 102.3 kg

DRUGS (2)
  1. WARFARIN SODIUM [Suspect]
     Indication: ATRIAL FIBRILLATION
     Dosage: 10 MG EVERY DAY PO
     Route: 048
     Dates: start: 20080215
  2. ASPIRIN [Suspect]

REACTIONS (8)
  - ANAEMIA [None]
  - DIARRHOEA [None]
  - FATIGUE [None]
  - DYSPNOEA EXERTIONAL [None]
  - VISION BLURRED [None]
  - CHEST PAIN [None]
  - INTERNATIONAL NORMALISED RATIO INCREASED [None]
  - HAEMORRHAGE [None]
